FAERS Safety Report 21080660 (Version 12)
Quarter: 2023Q2

REPORT INFORMATION
  Report Type: Spontaneous
  Country: CA (occurrence: CA)
  Receive Date: 20220714
  Receipt Date: 20230414
  Transmission Date: 20230721
  Serious: Yes (Hospitalization, Other)
  Sender: FDA-Public Use
  Company Number: CA-CELLTRION INC.-2022CA009345

PATIENT

DRUGS (10)
  1. INFLECTRA [Suspect]
     Active Substance: INFLIXIMAB-DYYB
     Indication: Colitis ulcerative
     Dosage: 500 MG, AT WEEK 0, 2 AND 6; THEN Q 4 WEEKS
     Route: 042
     Dates: start: 20220613
  2. INFLECTRA [Suspect]
     Active Substance: INFLIXIMAB-DYYB
     Dosage: 500 MG, AT WEEK 0, 2 AND 6; THEN Q 4 WEEKS
     Route: 042
     Dates: start: 20220629
  3. INFLECTRA [Suspect]
     Active Substance: INFLIXIMAB-DYYB
     Dosage: 500 MG, AT WEEK 0, 2 AND 6; THEN Q 4 WEEKS
     Route: 042
     Dates: start: 202207
  4. INFLECTRA [Suspect]
     Active Substance: INFLIXIMAB-DYYB
     Dosage: 500 MG, AT WEEK 0, 2 AND 6; THEN Q 4 WEEKS
     Route: 042
     Dates: start: 20221127
  5. INFLECTRA [Suspect]
     Active Substance: INFLIXIMAB-DYYB
     Dosage: 600 MG, RESCUE DOSE
     Route: 042
     Dates: start: 20221220, end: 20221220
  6. INFLECTRA [Suspect]
     Active Substance: INFLIXIMAB-DYYB
     Dosage: 800MG, REINDUCTION (W0, W2, W6) AND THEN Q4 WEEKS
     Route: 042
     Dates: start: 20230122
  7. INFLECTRA [Suspect]
     Active Substance: INFLIXIMAB-DYYB
     Dosage: 800MG, REINDUCTION W0, W2, W6 AND THEN Q4 WEEKS
     Route: 042
     Dates: start: 20230206
  8. MESALAMINE [Concomitant]
     Active Substance: MESALAMINE
     Dosage: 2.4 G, DAILY
     Route: 048
  9. PREDNISONE [Concomitant]
     Active Substance: PREDNISONE
     Dosage: UNK
  10. PREDNISONE [Concomitant]
     Active Substance: PREDNISONE
     Dosage: 1 DF

REACTIONS (10)
  - Crohn^s disease [Recovered/Resolved]
  - Ear infection [Unknown]
  - Pharyngeal swelling [Unknown]
  - Drug level decreased [Unknown]
  - Cough [Not Recovered/Not Resolved]
  - Weight decreased [Unknown]
  - Off label use [Unknown]
  - Off label use [Unknown]
  - Off label use [Unknown]
  - Intentional product use issue [Unknown]

NARRATIVE: CASE EVENT DATE: 20220101
